FAERS Safety Report 14183151 (Version 4)
Quarter: 2018Q1

REPORT INFORMATION
  Report Type: Spontaneous
  Country: US (occurrence: US)
  Receive Date: 20171113
  Receipt Date: 20180314
  Transmission Date: 20180508
  Serious: Yes (Life-Threatening, Hospitalization, Other)
  Sender: FDA-Public Use
  Company Number: US-JNJFOC-20171110272

PATIENT
  Age: 62 Year
  Sex: Male
  Weight: 93.8 kg

DRUGS (6)
  1. FINERENONE [Suspect]
     Active Substance: FINERENONE
     Indication: DIABETIC NEPHROPATHY
     Route: 048
     Dates: start: 20160819, end: 20170111
  2. XARELTO [Suspect]
     Active Substance: RIVAROXABAN
     Indication: PRODUCT USED FOR UNKNOWN INDICATION
     Route: 048
  3. FINERENONE [Suspect]
     Active Substance: FINERENONE
     Indication: DIABETIC NEPHROPATHY
     Route: 048
     Dates: start: 20170207, end: 20170228
  4. ASPIRIN. [Concomitant]
     Active Substance: ASPIRIN
     Indication: ROUTINE HEALTH MAINTENANCE
     Route: 048
     Dates: start: 20160113
  5. FINERENONE [Suspect]
     Active Substance: FINERENONE
     Indication: DIABETIC NEPHROPATHY
     Route: 048
     Dates: start: 20170114, end: 20170128
  6. ATORVASTATIN [Concomitant]
     Active Substance: ATORVASTATIN
     Indication: BLOOD TRIGLYCERIDES INCREASED
     Route: 048
     Dates: start: 20160113

REACTIONS (4)
  - Aortic valve replacement [Recovered/Resolved]
  - Aortic stenosis [Recovered/Resolved]
  - Hypovolaemia [Recovered/Resolved]
  - Gastrointestinal haemorrhage [Recovered/Resolved]

NARRATIVE: CASE EVENT DATE: 20170113
